FAERS Safety Report 4788074-X (Version None)
Quarter: 2005Q4

REPORT INFORMATION
  Report Type: 
  Country: None (occurrence: None)
  Receive Date: 20051003
  Receipt Date: 20050913
  Transmission Date: 20060501
  Serious: Yes (Other)
  Sender: FDA-Public Use
  Company Number: DSA_60513_2005

PATIENT
  Sex: Female

DRUGS (1)
  1. ORSTANORM [Suspect]
     Indication: MIGRAINE
     Dosage: DF
     Dates: start: 20041215

REACTIONS (1)
  - DRUG DEPENDENCE [None]
